FAERS Safety Report 10559980 (Version 1)
Quarter: 2014Q4

REPORT INFORMATION
  Report Type: Spontaneous
  Country: US (occurrence: None)
  Receive Date: 20141031
  Receipt Date: 20141031
  Transmission Date: 20150529
  Serious: Yes (Life-Threatening, Other)
  Sender: FDA-Public Use
  Company Number: None

PATIENT
  Age: 48 Year
  Sex: Female
  Weight: 58.51 kg

DRUGS (1)
  1. NESACAINE [Suspect]
     Active Substance: CHLOROPROCAINE HYDROCHLORIDE
     Route: 067

REACTIONS (6)
  - Dyspnoea [None]
  - Dizziness [None]
  - Tremor [None]
  - Chills [None]
  - Head discomfort [None]
  - Tinnitus [None]

NARRATIVE: CASE EVENT DATE: 20141024
